FAERS Safety Report 8401158-X (Version None)
Quarter: 2012Q2

REPORT INFORMATION
  Report Type: 
  Country: None (occurrence: None)
  Receive Date: 20120525
  Receipt Date: 20120509
  Transmission Date: 20120825
  Serious: Yes (Other)
  Sender: FDA-Public Use
  Company Number: DKLU1080487

PATIENT
  Sex: Female

DRUGS (2)
  1. NEOPROFEN [Suspect]
     Indication: PATENT DUCTUS ARTERIOSUS
  2. ANTIFUNGAL (TOLNAFTATE) [Concomitant]

REACTIONS (1)
  - RETINOPATHY OF PREMATURITY [None]
